FAERS Safety Report 9518629 (Version 1)
Quarter: 2013Q3

REPORT INFORMATION
  Report Type: Spontaneous
  Country: FR (occurrence: FR)
  Receive Date: 20130912
  Receipt Date: 20130912
  Transmission Date: 20140515
  Serious: Yes (Disabling)
  Sender: FDA-Public Use
  Company Number: PHHY2013FR100435

PATIENT
  Age: 72 Year
  Sex: Female

DRUGS (3)
  1. ZOMETA [Suspect]
     Dosage: UNK UKN, UNK
  2. REVLIMID [Suspect]
     Dosage: UNK UKN, UNK
  3. DEXAMETHASONE [Suspect]
     Dosage: UNK UKN, UNK

REACTIONS (1)
  - Cataract [Unknown]
